FAERS Safety Report 4366697-X (Version None)
Quarter: 2004Q2

REPORT INFORMATION
  Report Type: 
  Country: None (occurrence: None)
  Receive Date: 20040527
  Receipt Date: 20040520
  Transmission Date: 20050107
  Serious: Yes (Hospitalization)
  Sender: FDA-Public Use
  Company Number: 2004034126

PATIENT
  Age: 15 Month
  Sex: Female

DRUGS (1)
  1. CHILDREN'S KOAPECTATE (BISMUTH SUBSALICYLATE) [Suspect]
     Indication: DIARRHOEA
     Dosage: 1/2 TSP ONCE ORAL
     Route: 048
     Dates: start: 20040101, end: 20040101

REACTIONS (5)
  - ASTHENIA [None]
  - DECREASED ACTIVITY [None]
  - DEHYDRATION [None]
  - DIARRHOEA [None]
  - PYREXIA [None]
